FAERS Safety Report 6194387-X (Version None)
Quarter: 2009Q2

REPORT INFORMATION
  Report Type: 
  Country: None (occurrence: None)
  Receive Date: 20090519
  Receipt Date: 20090511
  Transmission Date: 20091009
  Serious: Yes (Other)
  Sender: FDA-Public Use
  Company Number: DE-BAYER-200912004GPV

PATIENT
  Sex: Female
  Weight: 56 kg

DRUGS (3)
  1. CIPROBAY [Suspect]
     Indication: CYSTITIS
     Dosage: IN TOTAL 10 TABLETS
     Route: 048
     Dates: start: 20080401, end: 20080401
  2. CIPROBAY URO [Suspect]
     Indication: CYSTITIS
     Dosage: IN TOTAL 6 TABLETS
     Route: 048
     Dates: end: 20080922
  3. LEVOTHYROXINE SODIUM [Concomitant]
     Indication: DRUG USE FOR UNKNOWN INDICATION
     Route: 065

REACTIONS (19)
  - ABDOMINAL DISCOMFORT [None]
  - ALOPECIA [None]
  - ARTHRALGIA [None]
  - AUTOMATIC BLADDER [None]
  - BLADDER DISCOMFORT [None]
  - BLOOD PRESSURE FLUCTUATION [None]
  - CONSTIPATION [None]
  - DYSPNOEA [None]
  - EYE DISORDER [None]
  - GASTROINTESTINAL MOTILITY DISORDER [None]
  - GENERAL PHYSICAL HEALTH DETERIORATION [None]
  - HAEMATOCHEZIA [None]
  - HORMONE LEVEL ABNORMAL [None]
  - MUSCLE ATROPHY [None]
  - PALLOR [None]
  - RASH MACULAR [None]
  - SKIN DISORDER [None]
  - SKIN WRINKLING [None]
  - WEIGHT DECREASED [None]
